FAERS Safety Report 24021251 (Version 1)
Quarter: 2024Q2

REPORT INFORMATION
  Report Type: Spontaneous
  Country: CN (occurrence: CN)
  Receive Date: 20240627
  Receipt Date: 20240627
  Transmission Date: 20240716
  Serious: Yes (Death, Hospitalization)
  Sender: FDA-Public Use
  Company Number: CN-CHIESI-2024CHF03634

PATIENT
  Age: 63 Year
  Sex: Male

DRUGS (7)
  1. RETAVASE [Suspect]
     Active Substance: RETEPLASE
     Indication: Acute myocardial infarction
     Dosage: UNK
     Route: 065
  2. RETAVASE [Suspect]
     Active Substance: RETEPLASE
  3. RETAVASE [Suspect]
     Active Substance: RETEPLASE
  4. DEVICE [Suspect]
     Active Substance: DEVICE
     Indication: Acute myocardial infarction
     Dosage: UNK
     Route: 065
  5. STERILE WATER [Suspect]
     Active Substance: WATER
     Indication: Acute myocardial infarction
     Dosage: UNK
     Route: 065
  6. DEVICE [Suspect]
     Active Substance: DEVICE
     Indication: Acute myocardial infarction
     Dosage: UNK
     Route: 065
  7. METOPROLOL [Suspect]
     Active Substance: METOPROLOL
     Indication: Acute myocardial infarction
     Dosage: UNK
     Route: 065

REACTIONS (1)
  - Cerebral haemorrhage [Fatal]
